FAERS Safety Report 22822797 (Version 4)
Quarter: 2023Q4

REPORT INFORMATION
  Report Type: Report from Study
  Country: US (occurrence: US)
  Receive Date: 20230815
  Receipt Date: 20231004
  Transmission Date: 20240109
  Serious: Yes (Death, Hospitalization)
  Sender: FDA-Public Use
  Company Number: US-BoehringerIngelheim-2023-BI-221425

PATIENT
  Age: 77 Year
  Sex: Male

DRUGS (1)
  1. OFEV [Suspect]
     Active Substance: NINTEDANIB
     Indication: Idiopathic pulmonary fibrosis
     Route: 048
     Dates: start: 20230215

REACTIONS (9)
  - Death [Fatal]
  - Pulmonary hypertension [Unknown]
  - Oxygen saturation abnormal [Unknown]
  - Respiratory disorder [Recovered/Resolved]
  - Haemorrhoidal haemorrhage [Recovered/Resolved]
  - COVID-19 [Recovered/Resolved]
  - Faeces soft [Recovering/Resolving]
  - Drug ineffective [Unknown]
  - Dyspnoea [Unknown]

NARRATIVE: CASE EVENT DATE: 20230201
